FAERS Safety Report 19703105 (Version 1)
Quarter: 2021Q3

REPORT INFORMATION
  Report Type: Spontaneous
  Country: PT (occurrence: PT)
  Receive Date: 20210816
  Receipt Date: 20210816
  Transmission Date: 20211014
  Serious: Yes (Hospitalization, Other)
  Sender: FDA-Public Use
  Company Number: PT-HIKMA PHARMACEUTICALS USA INC.-PT-H14001-21-03554

PATIENT
  Age: 17 Year
  Sex: Male

DRUGS (4)
  1. CEFUROXIME. [Suspect]
     Active Substance: CEFUROXIME
     Indication: POSTOPERATIVE WOUND INFECTION
  2. CLINDAMYCIN. [Concomitant]
     Active Substance: CLINDAMYCIN
     Indication: STAPHYLOCOCCAL SCALDED SKIN SYNDROME
     Dosage: 40 MG/KG/DAY
     Route: 065
  3. CEFUROXIME. [Suspect]
     Active Substance: CEFUROXIME
     Indication: STAPHYLOCOCCAL SCALDED SKIN SYNDROME
     Dosage: 150 MG/KG/DAY
     Route: 065
  4. FLUCLOXACILLIN [Concomitant]
     Active Substance: FLUCLOXACILLIN
     Indication: STAPHYLOCOCCAL SCALDED SKIN SYNDROME
     Dosage: 130 MG/KG/DAY
     Route: 041

REACTIONS (1)
  - Toxic skin eruption [Recovered/Resolved]
